FAERS Safety Report 5533961-8 (Version None)
Quarter: 2007Q4

REPORT INFORMATION
  Report Type: 
  Country: None (occurrence: None)
  Receive Date: 20071129
  Receipt Date: 20071115
  Transmission Date: 20080405
  Serious: Yes (Hospitalization)
  Sender: FDA-Public Use
  Company Number: 220001J07ESP

PATIENT
  Age: 12 Year
  Sex: Female

DRUGS (1)
  1. SAIZEN [Suspect]
     Indication: BLOOD GROWTH HORMONE DECREASED
     Dosage: 1.07 MG, 1 IN 1 DAYS, SUBCUTANEOUS
     Route: 058

REACTIONS (1)
  - ENCEPHALITIS VIRAL [None]
